FAERS Safety Report 4821649-8 (Version None)
Quarter: 2005Q4

REPORT INFORMATION
  Report Type: 
  Country: None (occurrence: None)
  Receive Date: 20051107
  Receipt Date: 20051031
  Transmission Date: 20060501
  Serious: Yes (Life-Threatening)
  Sender: FDA-Public Use
  Company Number: 2005AC01737

PATIENT
  Age: 39 Year
  Sex: Female

DRUGS (2)
  1. QUETIAPINE [Suspect]
     Route: 048
  2. CLONAZEPAM [Suspect]

REACTIONS (4)
  - AGITATION [None]
  - ANTICHOLINERGIC SYNDROME [None]
  - DELIRIUM [None]
  - OVERDOSE [None]
